FAERS Safety Report 9094964 (Version 1)
Quarter: 2013Q1

REPORT INFORMATION
  Report Type: Spontaneous
  Country: US (occurrence: US)
  Receive Date: 20130220
  Receipt Date: 20130220
  Transmission Date: 20140127
  Serious: No
  Sender: FDA-Public Use
  Company Number: US-009507513-1302USA007557

PATIENT
  Age: 46 Year
  Sex: Female

DRUGS (9)
  1. PEGINTRON [Suspect]
     Indication: HEPATITIS C
     Dosage: 150 MICROGRAM, QW
     Route: 058
     Dates: start: 20130120
  2. RIBAVIRIN [Suspect]
     Indication: HEPATITIS C
     Dosage: UNK
  3. TELAPREVIR [Suspect]
     Indication: HEPATITIS C
  4. ADDERALL [Concomitant]
  5. KLONOPIN [Concomitant]
  6. SYNTHROID [Concomitant]
  7. ULTRAM [Concomitant]
  8. NORTRIPTYLINE [Concomitant]
  9. LYRICA [Concomitant]

REACTIONS (4)
  - Influenza like illness [Recovering/Resolving]
  - Influenza like illness [Unknown]
  - Underdose [Unknown]
  - Product quality issue [Unknown]
